FAERS Safety Report 4372943-9 (Version None)
Quarter: 2004Q2

REPORT INFORMATION
  Report Type: 
  Country: None (occurrence: None)
  Receive Date: 20040603
  Receipt Date: 20040521
  Transmission Date: 20050107
  Serious: Yes (Other)
  Sender: FDA-Public Use
  Company Number: HQWYE138926MAR04

PATIENT
  Age: 48 Year
  Sex: Female

DRUGS (3)
  1. EFFEXOR XR [Suspect]
     Indication: DEPRESSION
     Dosage: 375 MG 1X PER 1 DAY; ORAL
     Route: 048
     Dates: start: 20030101
  2. BUSPAR [Concomitant]
  3. SOLIAN (AMISULPRIDE) [Concomitant]

REACTIONS (1)
  - MYASTHENIA GRAVIS [None]
